FAERS Safety Report 6772407-9 (Version None)
Quarter: 2010Q2

REPORT INFORMATION
  Report Type: 
  Country: None (occurrence: None)
  Receive Date: 20100616
  Receipt Date: 20090708
  Transmission Date: 20101027
  Serious: No
  Sender: FDA-Public Use
  Company Number: US-ASTRAZENECA-2009UW18919

PATIENT
  Age: 24 Year
  Sex: Male
  Weight: 72.6 kg

DRUGS (2)
  1. PULMICORT FLEXHALER [Suspect]
     Indication: COUGH
     Route: 055
     Dates: start: 20090701
  2. ALLEGRA [Concomitant]

REACTIONS (1)
  - APHTHOUS STOMATITIS [None]
